FAERS Safety Report 9144861 (Version 2)
Quarter: 2013Q2

REPORT INFORMATION
  Report Type: Spontaneous
  Country: US (occurrence: US)
  Receive Date: 20130307
  Receipt Date: 20130502
  Transmission Date: 20140414
  Serious: No
  Sender: FDA-Public Use
  Company Number: US-009507513-1302USA011207

PATIENT
  Age: 19 Year
  Sex: Female
  Weight: 56.96 kg

DRUGS (2)
  1. IMPLANON [Suspect]
     Dosage: UNK
     Dates: start: 20100302, end: 20130206
  2. VITAMINS (UNSPECIFIED) [Concomitant]

REACTIONS (9)
  - Scar [Unknown]
  - Device breakage [Recovered/Resolved]
  - Metrorrhagia [Recovered/Resolved]
  - Implant site pain [Unknown]
  - Implant site pruritus [Unknown]
  - Implant site pain [Unknown]
  - Incorrect drug administration duration [Unknown]
  - Product quality issue [Unknown]
  - Medical device complication [Unknown]
